FAERS Safety Report 4951332-X (Version None)
Quarter: 2006Q1

REPORT INFORMATION
  Report Type: 
  Country: None (occurrence: None)
  Receive Date: 20060317
  Receipt Date: 20060302
  Transmission Date: 20060701
  Serious: Yes (Other)
  Sender: FDA-Public Use
  Company Number: US200603000560

PATIENT
  Age: 26 Year
  Sex: Female
  Weight: 59 kg

DRUGS (2)
  1. ZYPREXA [Suspect]
     Indication: PSYCHOTIC DISORDER
     Dates: start: 20031001, end: 20031001
  2. ORTHO EVRA /USA/ (ETHINYLESTRADIOL, NORELGESTROMIN) [Concomitant]

REACTIONS (1)
  - ANAPHYLACTIC SHOCK [None]
